FAERS Safety Report 8036852-6 (Version None)
Quarter: 2012Q1

REPORT INFORMATION
  Report Type: 
  Country: None (occurrence: None)
  Receive Date: 20120111
  Receipt Date: 20120104
  Transmission Date: 20120608
  Serious: No
  Sender: FDA-Public Use
  Company Number: US-PFIZER INC-2012003473

PATIENT

DRUGS (1)
  1. ZYVOX [Suspect]
     Dosage: 600 MG, FREQUENCY UNKNOWN

REACTIONS (4)
  - MILIA [None]
  - ACNE [None]
  - ERYTHEMA [None]
  - PAIN OF SKIN [None]
